FAERS Safety Report 6671771-9 (Version None)
Quarter: 2010Q2

REPORT INFORMATION
  Report Type: 
  Country: None (occurrence: None)
  Receive Date: 20100407
  Receipt Date: 20100326
  Transmission Date: 20101027
  Serious: Yes (Hospitalization)
  Sender: FDA-Public Use
  Company Number: JP-PFIZER INC-2009240407

PATIENT
  Age: 69 Year
  Sex: Male
  Weight: 59.5 kg

DRUGS (2)
  1. SUNITINIB MALATE [Suspect]
     Indication: HEPATIC NEOPLASM
     Dosage: 37.5 MG, 1X/DAY
     Route: 048
     Dates: start: 20090529
  2. LAFUTIDINE [Concomitant]
     Dosage: UNK
     Route: 048
     Dates: end: 20090709

REACTIONS (1)
  - MALAISE [None]
